FAERS Safety Report 7959156-6 (Version None)
Quarter: 2011Q4

REPORT INFORMATION
  Report Type: 
  Country: None (occurrence: None)
  Receive Date: 20111206
  Receipt Date: 20111201
  Transmission Date: 20120403
  Serious: Yes (Death, Hospitalization, Other)
  Sender: FDA-Public Use
  Company Number: KR-SANOFI-AVENTIS-2011SA079342

PATIENT
  Age: 55 Year
  Sex: Male

DRUGS (6)
  1. LEUCOVORIN CALCIUM [Suspect]
     Route: 065
  2. LEUCOVORIN CALCIUM [Suspect]
     Route: 065
     Dates: start: 20100601
  3. ELOXATIN [Suspect]
     Route: 065
     Dates: start: 20100601
  4. ELOXATIN [Suspect]
     Route: 065
  5. FLUOROURACIL [Suspect]
     Route: 065
     Dates: start: 20100601
  6. FLUOROURACIL [Suspect]
     Route: 065

REACTIONS (8)
  - DYSPNOEA EXERTIONAL [None]
  - RALES [None]
  - PULMONARY FIBROSIS [None]
  - INTERSTITIAL LUNG DISEASE [None]
  - COUGH [None]
  - NEUTROPENIA [None]
  - MULTI-ORGAN FAILURE [None]
  - RESPIRATORY FAILURE [None]
